FAERS Safety Report 8029056-4 (Version None)
Quarter: 2012Q1

REPORT INFORMATION
  Report Type: 
  Country: None (occurrence: None)
  Receive Date: 20120106
  Receipt Date: 20111228
  Transmission Date: 20120608
  Serious: Yes (Hospitalization)
  Sender: FDA-Public Use
  Company Number: GB-MEDIMMUNE-MEDI-0014164

PATIENT
  Sex: Female
  Weight: 8.7 kg

DRUGS (1)
  1. SYNAGIS [Suspect]
     Dates: start: 20111001, end: 20111123

REACTIONS (3)
  - TYMPANIC MEMBRANE PERFORATION [None]
  - RESPIRATORY SYNCYTIAL VIRUS BRONCHIOLITIS [None]
  - LUNG CONSOLIDATION [None]
